FAERS Safety Report 9458121 (Version 1)
Quarter: 2013Q3

REPORT INFORMATION
  Report Type: Spontaneous
  Country: US (occurrence: US)
  Receive Date: 20130814
  Receipt Date: 20130814
  Transmission Date: 20140515
  Serious: No
  Sender: FDA-Public Use
  Company Number: US-ROXANE LABORATORIES, INC.-2013-RO-01348RO

PATIENT
  Sex: Male

DRUGS (1)
  1. FLUTICASONE [Suspect]
     Indication: RHINITIS ALLERGIC
     Route: 045

REACTIONS (1)
  - Nasopharyngitis [Unknown]
